FAERS Safety Report 4268724-7 (Version None)
Quarter: 2004Q1

REPORT INFORMATION
  Report Type: 
  Country: None (occurrence: None)
  Receive Date: 20040109
  Receipt Date: 20031229
  Transmission Date: 20041129
  Serious: Yes (Hospitalization, Other)
  Sender: FDA-Public Use
  Company Number: HQWYE916629DEC03

PATIENT
  Age: 68 Year
  Sex: Female

DRUGS (8)
  1. INIPOMP (PANTOPRAZOLE, TABLET, DELAYED RELEASE) [Suspect]
     Indication: ABDOMINAL PAIN
     Dosage: ^SOME MG SOME TIMES^
     Route: 048
     Dates: start: 20031120, end: 20031122
  2. INIPOMP (PANTOPRAZOLE, TABLET, DELAYED RELEASE) [Suspect]
     Indication: PAIN
     Dosage: ^SOME MG SOME TIMES^
     Route: 048
     Dates: start: 20031120, end: 20031122
  3. COAPROVEL (IRBESARTAN/HYDROCHLOROTHIAZIDE) [Suspect]
     Dosage: 300 MG 1X PER 1 DAY
     Route: 048
     Dates: start: 20031120, end: 20031122
  4. IBUPROFEN AND PSEUDOEPHEDRINE HCL [Suspect]
     Indication: PYREXIA
     Dosage: 230 MG
     Route: 048
     Dates: start: 20031115, end: 20031120
  5. FENOFIBRATE [Suspect]
     Dosage: 300 MG 1X PER 1 DAY
     Route: 048
  6. VAXIGRIP (INFLUENZA VIRUS VACCINE POLYVALENT) [Suspect]
     Indication: IMMUNISATION
     Dosage: 1 TIME
     Dates: start: 20031114, end: 20031114
  7. ZESTORETIC ^STUART COMPANY^ (HYDROCHLOROTHIAZIDE/LISINOPRIL) [Suspect]
     Dosage: SEE IMAGE
     Route: 048
     Dates: end: 20031120
  8. ZESTORETIC ^STUART COMPANY^ (HYDROCHLOROTHIAZIDE/LISINOPRIL) [Suspect]
     Dosage: SEE IMAGE
     Route: 048
     Dates: start: 20031122

REACTIONS (6)
  - ABDOMINAL PAIN [None]
  - ERYTHEMA MULTIFORME [None]
  - LYMPHOCYTE COUNT INCREASED [None]
  - PYREXIA [None]
  - RASH GENERALISED [None]
  - RHINITIS [None]
